FAERS Safety Report 8672565 (Version 4)
Quarter: 2013Q3

REPORT INFORMATION
  Report Type: Report from Study
  Country: US (occurrence: US)
  Receive Date: 20120719
  Receipt Date: 20130801
  Transmission Date: 20140515
  Serious: Yes (Hospitalization, Other)
  Sender: FDA-Public Use
  Company Number: US-BRISTOL-MYERS SQUIBB COMPANY-16676637

PATIENT
  Age: 65 Year
  Sex: Male
  Weight: 68.2 kg

DRUGS (4)
  1. IPILIMUMAB [Suspect]
     Indication: MALIGNANT MELANOMA
     Dosage: IPIL10MG/KG IV 90MIN,Q3WKX4DOS(INDUC);Q12WK;WKS24,26,48+60(MAIN)LST DOS 29MAY12; NO OF COU:2; 671MG
     Route: 042
     Dates: start: 20120508, end: 20120529
  2. METFORMIN HCL [Suspect]
     Indication: DIABETES MELLITUS
  3. GLIPIZIDE [Suspect]
     Indication: DIABETES MELLITUS
  4. LOMOTIL [Concomitant]

REACTIONS (6)
  - Colitis [Recovering/Resolving]
  - Lower gastrointestinal haemorrhage [Unknown]
  - Hypoglycaemia [Recovered/Resolved with Sequelae]
  - Fatigue [Unknown]
  - Hyperglycaemia [Recovering/Resolving]
  - Hypokalaemia [Unknown]
